FAERS Safety Report 8843689 (Version 4)
Quarter: 2016Q1

REPORT INFORMATION
  Report Type: Spontaneous
  Country: US (occurrence: US)
  Receive Date: 20121016
  Receipt Date: 20160209
  Transmission Date: 20160526
  Serious: Yes (Hospitalization, Disabling, Other)
  Sender: FDA-Public Use
  Company Number: US-009507513-1210USA006917

PATIENT
  Sex: Female

DRUGS (9)
  1. ALENDRONATE SODIUM. [Suspect]
     Active Substance: ALENDRONATE SODIUM
     Indication: OSTEOPOROSIS
  2. FORTEO [Suspect]
     Active Substance: TERIPARATIDE
     Indication: BONE DISORDER
     Dosage: 600/2.4, PEN QD
     Route: 065
     Dates: start: 20070623, end: 20080603
  3. FORTEO [Suspect]
     Active Substance: TERIPARATIDE
     Indication: OSTEOPOROSIS
  4. FOSAMAX [Suspect]
     Active Substance: ALENDRONATE SODIUM
     Indication: BONE DISORDER
     Dosage: 70 MG, QW
     Route: 048
     Dates: start: 20100621, end: 20110620
  5. ALENDRONATE SODIUM. [Suspect]
     Active Substance: ALENDRONATE SODIUM
     Indication: BONE DISORDER
     Dosage: 70 MG, QW
     Route: 048
     Dates: start: 20090202, end: 20101209
  6. ALENDRONATE SODIUM. [Suspect]
     Active Substance: ALENDRONATE SODIUM
     Indication: BONE DISORDER
     Dosage: 70 MG, QW
     Route: 048
     Dates: start: 20090204, end: 20110427
  7. FOSAMAX [Suspect]
     Active Substance: ALENDRONATE SODIUM
     Indication: OSTEOPOROSIS PROPHYLAXIS
     Dosage: 10 MG, QW
     Route: 048
     Dates: start: 19991129, end: 20001127
  8. FOSAMAX [Suspect]
     Active Substance: ALENDRONATE SODIUM
     Indication: OSTEOPOROSIS
     Dosage: 70 MG, QW
     Route: 048
     Dates: start: 20001127, end: 20090102
  9. ALENDRONATE SODIUM. [Suspect]
     Active Substance: ALENDRONATE SODIUM
     Indication: OSTEOPETROSIS

REACTIONS (29)
  - Foot fracture [Unknown]
  - Ear disorder [Unknown]
  - Osteonecrosis [Unknown]
  - Hypoxia [Unknown]
  - Vitamin D deficiency [Unknown]
  - Inappropriate schedule of drug administration [Unknown]
  - Bronchitis [Unknown]
  - Cerebrovascular accident [Unknown]
  - Femur fracture [Unknown]
  - Femur fracture [Unknown]
  - Road traffic accident [Unknown]
  - Pneumonia [Unknown]
  - Haematuria [Recovered/Resolved]
  - Low turnover osteopathy [Unknown]
  - Cardiac disorder [Unknown]
  - Anxiety [Unknown]
  - Cerebrovascular accident [Unknown]
  - Pulmonary congestion [Unknown]
  - Cardiac disorder [Unknown]
  - Pneumonia [Unknown]
  - Blood cholesterol increased [Not Recovered/Not Resolved]
  - Gastrooesophageal reflux disease [Unknown]
  - Increased bronchial secretion [Unknown]
  - Pneumonia [Unknown]
  - Staphylococcal infection [Unknown]
  - Hypoxia [Unknown]
  - Osteopetrosis [Unknown]
  - Pneumonia [Unknown]
  - Pseudomonas infection [Unknown]

NARRATIVE: CASE EVENT DATE: 19991129
